FAERS Safety Report 24405049 (Version 1)
Quarter: 2024Q4

REPORT INFORMATION
  Report Type: Spontaneous
  Country: CN (occurrence: CN)
  Receive Date: 20241007
  Receipt Date: 20241007
  Transmission Date: 20250114
  Serious: No
  Sender: ROCHE
  Company Number: CN-ROCHE-3559375

PATIENT
  Age: 49 Year
  Sex: Female

DRUGS (6)
  1. GAZYVA [Suspect]
     Active Substance: OBINUTUZUMAB
     Indication: Follicular lymphoma
     Dosage: REGIMEN GB, FOR 3 TIMES
     Route: 042
     Dates: start: 20221128
  2. GAZYVA [Suspect]
     Active Substance: OBINUTUZUMAB
     Dosage: REGIMEN GB,2-APR-2023,28-APR-2023,20-MAY-2023,D1
     Route: 042
     Dates: start: 20230311
  3. GAZYVA [Suspect]
     Active Substance: OBINUTUZUMAB
     Dosage: REGIMEN G,8-JUL-2023, MAINTAINED FOR 2 YEARS
     Route: 042
     Dates: start: 20230610
  4. BENDAMUSTINE [Concomitant]
     Active Substance: BENDAMUSTINE
     Indication: Follicular lymphoma
     Dosage: REGIMEN GB, 100MG D1, 200MG D2
     Dates: start: 20221128
  5. BENDAMUSTINE [Concomitant]
     Active Substance: BENDAMUSTINE
     Dosage: REGIMEN SINGLE B
     Dates: start: 20230128
  6. BENDAMUSTINE [Concomitant]
     Active Substance: BENDAMUSTINE
     Dosage: REGIMEN GB,2-APR-2023,28-APR-2023,20-MAY-2023,100MG D1, 200MG D2
     Dates: start: 20230311

REACTIONS (1)
  - COVID-19 [Recovering/Resolving]
